FAERS Safety Report 18411723 (Version 4)
Quarter: 2021Q1

REPORT INFORMATION
  Report Type: Report from Study
  Country: GB (occurrence: GB)
  Receive Date: 20201021
  Receipt Date: 20210215
  Transmission Date: 20210419
  Serious: Yes (Other)
  Sender: FDA-Public Use
  Company Number: NVSC2020GB280152

PATIENT
  Sex: Female

DRUGS (1)
  1. HYRIMOZ [Suspect]
     Active Substance: ADALIMUMAB-ADAZ
     Indication: RHEUMATOID ARTHRITIS
     Dosage: 40 MG, Q2W (FORTNIGHTLY, EOW)
     Route: 058

REACTIONS (9)
  - Oral pain [Unknown]
  - Product dose omission issue [Unknown]
  - Overdose [Unknown]
  - Cauda equina syndrome [Unknown]
  - Poor quality sleep [Unknown]
  - Eating disorder [Unknown]
  - Mouth ulceration [Unknown]
  - Stress [Not Recovered/Not Resolved]
  - Rheumatoid arthritis [Recovering/Resolving]
